FAERS Safety Report 4314299-3 (Version None)
Quarter: 2004Q1

REPORT INFORMATION
  Report Type: 
  Country: None (occurrence: None)
  Receive Date: 20040309
  Receipt Date: 20040227
  Transmission Date: 20041129
  Serious: Yes (Disabling)
  Sender: FDA-Public Use
  Company Number: WAES 0403USA00031

PATIENT
  Sex: Female

DRUGS (3)
  1. [THERAPY UNSPECIFIED] [Concomitant]
  2. CARDIZEM [Concomitant]
  3. ZETIA [Suspect]
     Indication: BLOOD CHOLESTEROL INCREASED
     Route: 048

REACTIONS (11)
  - ASTHENIA [None]
  - ASTHENOPIA [None]
  - BACK PAIN [None]
  - DIFFICULTY IN WALKING [None]
  - DYSPNOEA [None]
  - DYSSTASIA [None]
  - EYELID SENSORY DISORDER [None]
  - INCONTINENCE [None]
  - MASTICATION DISORDER [None]
  - PAIN [None]
  - TOOTHACHE [None]
